FAERS Safety Report 9027461 (Version 1)
Quarter: 2013Q1

REPORT INFORMATION
  Report Type: Spontaneous
  Country: FR (occurrence: FR)
  Receive Date: 20130124
  Receipt Date: 20130124
  Transmission Date: 20140127
  Serious: Yes (Other)
  Sender: FDA-Public Use
  Company Number: FR-BIOGENIDEC-2013BI005368

PATIENT
  Age: 44 Year
  Sex: Male

DRUGS (16)
  1. TYSABRI [Suspect]
     Indication: MULTIPLE SCLEROSIS
     Route: 042
     Dates: start: 201103, end: 20121114
  2. NEURONTIN [Concomitant]
     Dates: start: 201204, end: 201206
  3. NEURONTIN [Concomitant]
     Dates: start: 201206, end: 201210
  4. NEURONTIN [Concomitant]
     Dates: start: 201210
  5. MANTADIX [Concomitant]
     Dates: start: 201204
  6. OMIX [Concomitant]
     Dates: start: 2006
  7. FLUOXETINE [Concomitant]
     Dates: start: 2002
  8. OMEPRAZOLE [Concomitant]
     Dates: start: 2007, end: 201104
  9. OMEPRAZOLE [Concomitant]
     Dates: start: 201107
  10. LANZOR [Concomitant]
     Dates: start: 2006, end: 2007
  11. INEXIUM [Concomitant]
     Dates: start: 201104, end: 201107
  12. CRESTOR [Concomitant]
     Dates: start: 201010
  13. LIORESAL [Concomitant]
     Dates: start: 201104
  14. ZYRTEC [Concomitant]
     Indication: ATOPY
  15. PARACETAMOL [Concomitant]
  16. REFRESH [Concomitant]
     Dates: start: 201010

REACTIONS (1)
  - Purpura [Not Recovered/Not Resolved]
